FAERS Safety Report 23619859 (Version 3)
Quarter: 2024Q2

REPORT INFORMATION
  Report Type: Spontaneous
  Country: ES (occurrence: ES)
  Receive Date: 20240312
  Receipt Date: 20240424
  Transmission Date: 20240716
  Serious: Yes (Other)
  Sender: FDA-Public Use
  Company Number: ES-BEIGENE-BGN-2024-003489

PATIENT

DRUGS (1)
  1. BRUKINSA [Suspect]
     Active Substance: ZANUBRUTINIB
     Indication: Waldenstrom^s macroglobulinaemia
     Dosage: 160/12H
     Dates: start: 20230728

REACTIONS (5)
  - Generalised tonic-clonic seizure [Recovering/Resolving]
  - Thoracic vertebral fracture [Recovering/Resolving]
  - Humerus fracture [Recovering/Resolving]
  - Tongue biting [Recovering/Resolving]
  - Postictal state [Recovering/Resolving]

NARRATIVE: CASE EVENT DATE: 20240304
